FAERS Safety Report 17555015 (Version 1)
Quarter: 2020Q1

REPORT INFORMATION
  Report Type: Spontaneous
  Country: DE (occurrence: DE)
  Receive Date: 20200318
  Receipt Date: 20200318
  Transmission Date: 20200409
  Serious: Yes (Other)
  Sender: FDA-Public Use
  Company Number: NVSC2020DE071262

PATIENT
  Sex: Female

DRUGS (16)
  1. RITUXIMAB. [Suspect]
     Active Substance: RITUXIMAB
     Dosage: UNK (2ND LINE, R-GDP 1 CYCLE)
     Route: 065
     Dates: start: 201811, end: 201811
  2. DEXAMETHASONE. [Suspect]
     Active Substance: DEXAMETHASONE
     Indication: DIFFUSE LARGE B-CELL LYMPHOMA
     Dosage: UNK (2ND LINE THERAPY; R-GDP 1 CYCLE.)
     Route: 065
     Dates: start: 201811, end: 201811
  3. MELPHALAN. [Concomitant]
     Active Substance: MELPHALAN
     Indication: PRODUCT USED FOR UNKNOWN INDICATION
     Dosage: UNK
     Route: 065
  4. RITUXIMAB. [Suspect]
     Active Substance: RITUXIMAB
     Dosage: UNK (1ST LINE, R-CHOP 6 CYCLES  )
     Route: 065
     Dates: start: 201710, end: 201801
  5. CISPLATIN. [Suspect]
     Active Substance: CISPLATIN
     Dosage: UNK (FURTHER LINE; R-DHAP 2 CYCLES.)
     Route: 065
     Dates: start: 201812, end: 201901
  6. VINCRISTINE [Suspect]
     Active Substance: VINCRISTINE
     Indication: DIFFUSE LARGE B-CELL LYMPHOMA
     Dosage: UNK (1ST LINE, R-CHOP 6 CYCLES)
     Route: 065
     Dates: start: 201710, end: 201801
  7. CARMUSTINE. [Concomitant]
     Active Substance: CARMUSTINE
     Indication: PRODUCT USED FOR UNKNOWN INDICATION
     Dosage: UNK
     Route: 065
  8. CYCLOPHOSPHAMIDE. [Suspect]
     Active Substance: CYCLOPHOSPHAMIDE
     Indication: DIFFUSE LARGE B-CELL LYMPHOMA
     Dosage: UNK (1ST LINE, R-CHOP 6 CYCLES)
     Route: 065
     Dates: start: 201710, end: 201801
  9. CYTARABINE. [Suspect]
     Active Substance: CYTARABINE
     Indication: DIFFUSE LARGE B-CELL LYMPHOMA
     Dosage: UNK (FURTHER LINES; R-DHAP 2 CYCLES)
     Route: 065
     Dates: start: 201812, end: 201901
  10. ETOPOSIDE. [Concomitant]
     Active Substance: ETOPOSIDE
     Indication: PRODUCT USED FOR UNKNOWN INDICATION
     Dosage: UNK
     Route: 065
  11. CISPLATIN. [Suspect]
     Active Substance: CISPLATIN
     Indication: DIFFUSE LARGE B-CELL LYMPHOMA
     Dosage: UNK (2ND LINE THERAPY; R-GDP 1 CYCLE)
     Route: 065
     Dates: start: 201811, end: 201811
  12. RITUXIMAB. [Suspect]
     Active Substance: RITUXIMAB
     Indication: PRODUCT USED FOR UNKNOWN INDICATION
     Dosage: UNK (FURTHER LINE, R-DHAP 2 CYCLES)
     Route: 065
     Dates: start: 201812, end: 201901
  13. DOXORUBICIN [Suspect]
     Active Substance: DOXORUBICIN
     Indication: DIFFUSE LARGE B-CELL LYMPHOMA
     Dosage: UNK (1ST LINE, R-CHOP 6 CYCLES)
     Route: 065
     Dates: start: 201710, end: 201801
  14. DEXAMETHASONE. [Suspect]
     Active Substance: DEXAMETHASONE
     Dosage: UNK (FURTHER LINES; R-DHAP 2 CYCLES. )
     Route: 065
     Dates: start: 201812, end: 201901
  15. PREDNISONE. [Suspect]
     Active Substance: PREDNISONE
     Indication: DIFFUSE LARGE B-CELL LYMPHOMA
     Dosage: UNK (1ST LINE, R-CHOP 6 CYCLES)
     Route: 065
     Dates: start: 201710, end: 201801
  16. GEMCITABINE. [Suspect]
     Active Substance: GEMCITABINE
     Indication: DIFFUSE LARGE B-CELL LYMPHOMA
     Dosage: UNK (2ND LINE THERAPY; R-GDP 1 CYCLE.)
     Route: 065
     Dates: start: 201811, end: 201811

REACTIONS (3)
  - Tachyarrhythmia [Unknown]
  - Haemoglobin decreased [Unknown]
  - Pneumonia influenzal [Unknown]
